FAERS Safety Report 20691017 (Version 2)
Quarter: 2022Q2

REPORT INFORMATION
  Report Type: Spontaneous
  Country: JP (occurrence: JP)
  Receive Date: 20220408
  Receipt Date: 20220526
  Transmission Date: 20220721
  Serious: No
  Sender: FDA-Public Use
  Company Number: A202200178-001

PATIENT
  Sex: Male

DRUGS (12)
  1. BENDAMUSTINE HYDROCHLORIDE [Suspect]
     Active Substance: BENDAMUSTINE HYDROCHLORIDE
     Indication: Diffuse large B-cell lymphoma recurrent
     Dosage: 90 MG/M2, CYCLE 1 GB THERAPY
     Route: 042
  2. BENDAMUSTINE HYDROCHLORIDE [Suspect]
     Active Substance: BENDAMUSTINE HYDROCHLORIDE
     Dosage: 90 MG/M2, CYCLE 2 GB THERAPY
     Route: 042
  3. BENDAMUSTINE HYDROCHLORIDE [Suspect]
     Active Substance: BENDAMUSTINE HYDROCHLORIDE
     Dosage: 90 MG/M2, CYCLE 3 GB THERAPY
     Route: 042
  4. BENDAMUSTINE HYDROCHLORIDE [Suspect]
     Active Substance: BENDAMUSTINE HYDROCHLORIDE
     Dosage: 90 MG/M2, CYCLE 4 GB THERAPY
     Route: 042
  5. BENDAMUSTINE HYDROCHLORIDE [Suspect]
     Active Substance: BENDAMUSTINE HYDROCHLORIDE
     Dosage: 90 MG/M2, CYCLE 5 GB THERAPY
     Route: 042
  6. BENDAMUSTINE HYDROCHLORIDE [Suspect]
     Active Substance: BENDAMUSTINE HYDROCHLORIDE
     Dosage: 90 MG/M2, CYCLE 6 GB THERAPY
     Route: 042
  7. GAZYVA [Suspect]
     Active Substance: OBINUTUZUMAB
     Indication: Diffuse large B-cell lymphoma recurrent
     Dosage: 1000 MG, CYCLE 1 GB THERAPY
     Route: 042
  8. GAZYVA [Suspect]
     Active Substance: OBINUTUZUMAB
     Dosage: 1000 MG, CYCLE 2 GB THERAPY
     Route: 042
  9. GAZYVA [Suspect]
     Active Substance: OBINUTUZUMAB
     Dosage: 1000 MG, CYCLE 3 GB THERAPY
     Route: 042
  10. GAZYVA [Suspect]
     Active Substance: OBINUTUZUMAB
     Dosage: 1000 MG, CYCLE 4 GB THERAPY
     Route: 042
  11. GAZYVA [Suspect]
     Active Substance: OBINUTUZUMAB
     Dosage: 1000 MG, CYCLE 5 GB THERAPY
     Route: 042
  12. GAZYVA [Suspect]
     Active Substance: OBINUTUZUMAB
     Dosage: 1000 MG, CYCLE 6 GB THERAPY
     Route: 042

REACTIONS (5)
  - Oesophageal candidiasis [Recovered/Resolved]
  - Cytomegalovirus viraemia [Recovered/Resolved]
  - Pyrexia [Recovered/Resolved]
  - Decreased appetite [Recovered/Resolved]
  - Chest pain [Recovered/Resolved]

NARRATIVE: CASE EVENT DATE: 20220314
